FAERS Safety Report 7300039-2 (Version None)
Quarter: 2011Q1

REPORT INFORMATION
  Report Type: 
  Country: None (occurrence: None)
  Receive Date: 20110208
  Receipt Date: 20110127
  Transmission Date: 20110831
  Serious: Yes (Hospitalization)
  Sender: FDA-Public Use
  Company Number: WAES 1101USA03460

PATIENT
  Age: 21 Year
  Sex: Male
  Weight: 66.2252 kg

DRUGS (7)
  1. TAB DARUNAVIR 400 MG [Suspect]
     Indication: HIV INFECTION
     Dosage: 400 MG/BID/PO
     Route: 048
     Dates: start: 20100506
  2. ALBUTEROL SULFATE [Concomitant]
  3. TAB EMTRICITABINE (+) TENOFOVIR DISOPROXIL FUMARATE 200 MG-300 MG [Suspect]
     Indication: HIV INFECTION
     Dosage: 200 MG-300 MG/DAILY/PO
     Route: 048
     Dates: start: 20100506
  4. AZITHROMYCIN [Concomitant]
  5. VALACYCLOVIR HYDROCHLORIDE [Concomitant]
  6. CAP RITONAVIR 100 MG [Suspect]
     Indication: HIV INFECTION
     Dosage: 100 MG/DAILY/PO
     Route: 048
     Dates: start: 20100506
  7. TAB MK-0518 UNK [Suspect]
     Indication: HIV INFECTION
     Dosage: PO
     Route: 048

REACTIONS (2)
  - PERIRECTAL ABSCESS [None]
  - BACTERIAL TEST POSITIVE [None]
